FAERS Safety Report 6794989-3 (Version None)
Quarter: 2010Q2

REPORT INFORMATION
  Report Type: 
  Country: None (occurrence: None)
  Receive Date: 20100625
  Receipt Date: 20100622
  Transmission Date: 20101027
  Serious: Yes (Death)
  Sender: FDA-Public Use
  Company Number: CH-SANOFI-AVENTIS-2010SA036045

PATIENT
  Age: 49 Year
  Sex: Female
  Weight: 125 kg

DRUGS (7)
  1. MULTAQ [Suspect]
     Indication: ATRIAL FIBRILLATION
     Route: 048
     Dates: start: 20100505, end: 20100522
  2. MULTAQ [Suspect]
     Indication: CARDIAC FLUTTER
     Route: 048
     Dates: start: 20100505, end: 20100522
  3. LASIX [Concomitant]
     Indication: DRUG USE FOR UNKNOWN INDICATION
     Route: 048
  4. ALLOPURINOL [Concomitant]
     Indication: DRUG USE FOR UNKNOWN INDICATION
     Route: 048
  5. MARCUMAR [Concomitant]
     Indication: DRUG USE FOR UNKNOWN INDICATION
     Route: 048
  6. CONCOR [Concomitant]
     Indication: DRUG USE FOR UNKNOWN INDICATION
     Route: 048
  7. COLCHICINE [Concomitant]
     Indication: DRUG USE FOR UNKNOWN INDICATION
     Route: 048

REACTIONS (3)
  - DYSPNOEA [None]
  - SUDDEN DEATH [None]
  - TACHYCARDIA [None]
